FAERS Safety Report 25051850 (Version 3)
Quarter: 2025Q1

REPORT INFORMATION
  Report Type: Report from Study
  Country: FR (occurrence: FR)
  Receive Date: 20250307
  Receipt Date: 20250321
  Transmission Date: 20250409
  Serious: Yes (Hospitalization, Other)
  Sender: KYOWA
  Company Number: FR-KYOWAKIRIN-2025KK004199

PATIENT

DRUGS (8)
  1. MOGAMULIZUMAB [Suspect]
     Active Substance: MOGAMULIZUMAB
     Indication: Cutaneous T-cell lymphoma
     Dosage: 56 MG, 1X/WEEK (30 MINUTES INFUSION COMPLETE DOSE ADMINISTERED)
     Route: 042
     Dates: start: 20250123, end: 20250123
  2. MOGAMULIZUMAB [Suspect]
     Active Substance: MOGAMULIZUMAB
     Dosage: 54 MG, 1X/WEEK (30 MINUTES INFUSION COMPLETE DOSE ADMINISTERED)
     Route: 042
     Dates: start: 20250130, end: 20250130
  3. MOGAMULIZUMAB [Suspect]
     Active Substance: MOGAMULIZUMAB
     Dosage: 54 MG, 1X/WEEK (30 MINUTES INFUSION COMPLETE DOSE ADMINISTERED)
     Route: 042
     Dates: start: 20250206, end: 20250206
  4. MOGAMULIZUMAB [Suspect]
     Active Substance: MOGAMULIZUMAB
     Dosage: 54 MG, 1X/WEEK (30 MINUTES INFUSION COMPLETE DOSE ADMINISTERED)
     Route: 042
     Dates: start: 20250213, end: 20250213
  5. MOGAMULIZUMAB [Suspect]
     Active Substance: MOGAMULIZUMAB
     Dosage: 54 MG, 1X/WEEK (30 MINUTES INFUSION COMPLETE DOSE ADMINISTERED)
     Route: 042
     Dates: start: 20250221, end: 20250221
  6. BACTRIM [Concomitant]
     Active Substance: SULFAMETHOXAZOLE\TRIMETHOPRIM
     Indication: Product used for unknown indication
     Route: 065
     Dates: start: 20250123, end: 20250304
  7. VALACYCLOVIR HYDROCHLORIDE [Concomitant]
     Active Substance: VALACYCLOVIR HYDROCHLORIDE
     Indication: Product used for unknown indication
     Route: 065
     Dates: start: 20250123
  8. ASPIRIN [Concomitant]
     Active Substance: ASPIRIN
     Indication: Product used for unknown indication
     Route: 065

REACTIONS (1)
  - Dermatitis exfoliative generalised [Recovered/Resolved with Sequelae]

NARRATIVE: CASE EVENT DATE: 20250303
